FAERS Safety Report 20544104 (Version 1)
Quarter: 2022Q1

REPORT INFORMATION
  Report Type: Spontaneous
  Country: PL (occurrence: PL)
  Receive Date: 20220303
  Receipt Date: 20220303
  Transmission Date: 20220423
  Serious: Yes (Death, Hospitalization, Other)
  Sender: FDA-Public Use
  Company Number: None

PATIENT
  Age: 36 Year
  Sex: Male

DRUGS (5)
  1. SIMVASTATIN [Suspect]
     Active Substance: SIMVASTATIN
     Indication: Hypertension
     Dosage: 20 MILLIGRAM, QD (20 MILLIGRAM PER DAY)
  2. PROPRANOLOL [Suspect]
     Active Substance: PROPRANOLOL HYDROCHLORIDE
     Indication: Hypertension
     Dosage: 20 MILLIGRAM, QD (20 MG, PER DAY)
  3. RISPERIDONE [Suspect]
     Active Substance: RISPERIDONE
     Indication: Schizophrenia
     Dosage: 4.5 MILLIGRAM, QD, DOSE WAS GRADUALLY REDUCED
     Route: 048
  4. OLANZAPINE [Suspect]
     Active Substance: OLANZAPINE
     Indication: Mental disorder
     Dosage: 10 MG, PER DAY IN THE EVENING,HS
     Route: 065
  5. FLUVOXAMINE [Suspect]
     Active Substance: FLUVOXAMINE
     Indication: Intellectual disability
     Dosage: 100 MILLIGRAM, EVERY MORNING
     Route: 065

REACTIONS (11)
  - Drug ineffective [Unknown]
  - Psychomotor skills impaired [Unknown]
  - Upper respiratory tract congestion [Unknown]
  - Cough [Unknown]
  - Pulmonary embolism [Fatal]
  - Obesity [Unknown]
  - Joint swelling [Unknown]
  - Serotonin syndrome [Unknown]
  - Gynaecomastia [Unknown]
  - Catatonia [Unknown]
  - Off label use [Unknown]
